FAERS Safety Report 20160249 (Version 3)
Quarter: 2022Q1

REPORT INFORMATION
  Report Type: Report from Study
  Country: US (occurrence: US)
  Receive Date: 20211208
  Receipt Date: 20220124
  Transmission Date: 20220423
  Serious: No
  Sender: FDA-Public Use
  Company Number: US-NOVARTISTESTPH-NVSC2021US279225

PATIENT
  Age: 63 Year
  Sex: Female

DRUGS (1)
  1. KESIMPTA [Suspect]
     Active Substance: OFATUMUMAB
     Indication: Product used for unknown indication
     Dosage: 150 MG, QW
     Route: 065

REACTIONS (10)
  - Device use issue [Unknown]
  - Injury associated with device [Unknown]
  - Incorrect dose administered [Unknown]
  - Device issue [Unknown]
  - Hyperhidrosis [Unknown]
  - Pain [Unknown]
  - Accidental exposure to product [Unknown]
  - Headache [Unknown]
  - Chills [Unknown]
  - Pyrexia [Unknown]

NARRATIVE: CASE EVENT DATE: 20211205
